FAERS Safety Report 18107784 (Version 1)
Quarter: 2020Q3

REPORT INFORMATION
  Report Type: Spontaneous
  Country: US (occurrence: US)
  Receive Date: 20200804
  Receipt Date: 20200804
  Transmission Date: 20201103
  Serious: No
  Sender: FDA-Public Use
  Company Number: None

PATIENT
  Age: 80 Year
  Sex: Male
  Weight: 67.59 kg

DRUGS (6)
  1. CAPECITABINE. [Suspect]
     Active Substance: CAPECITABINE
     Indication: COLON CANCER
     Route: 048
     Dates: start: 20200406
  2. MVI [Concomitant]
     Active Substance: VITAMINS
  3. MARINOL [Concomitant]
     Active Substance: DRONABINOL
  4. IRINOTECAN [Concomitant]
     Active Substance: IRINOTECAN
  5. VITAMIN B12 [Concomitant]
     Active Substance: CYANOCOBALAMIN
  6. XARELTO [Concomitant]
     Active Substance: RIVAROXABAN

REACTIONS (2)
  - Disease progression [None]
  - Weight decreased [None]

NARRATIVE: CASE EVENT DATE: 20200804
